FAERS Safety Report 24645209 (Version 1)
Quarter: 2024Q4

REPORT INFORMATION
  Report Type: Spontaneous
  Country: US (occurrence: US)
  Receive Date: 20241121
  Receipt Date: 20241121
  Transmission Date: 20250114
  Serious: No
  Sender: SANOFI AVENTIS
  Company Number: US-SA-2024SA335359

PATIENT
  Sex: Female

DRUGS (1)
  1. AUBAGIO [Suspect]
     Active Substance: TERIFLUNOMIDE
     Indication: Multiple sclerosis
     Dosage: UNK; 20 MG/0.4ML
     Route: 058

REACTIONS (4)
  - Impaired healing [Recovered/Resolved]
  - Alopecia [Unknown]
  - Hysterectomy [Unknown]
  - Incorrect route of product administration [Unknown]
